FAERS Safety Report 11289711 (Version 1)
Quarter: 2015Q3

REPORT INFORMATION
  Report Type: Spontaneous
  Country: US (occurrence: US)
  Receive Date: 20150721
  Receipt Date: 20150721
  Transmission Date: 20151125
  Serious: No
  Sender: FDA-Public Use
  Company Number: ALCN2015US004495

PATIENT
  Age: 72 Year
  Sex: Female

DRUGS (1)
  1. ILEVRO [Suspect]
     Active Substance: NEPAFENAC
     Indication: CATARACT OPERATION
     Dosage: 1 GTT, UNK
     Route: 047
     Dates: start: 20150621, end: 20150714

REACTIONS (2)
  - Dry eye [Recovered/Resolved]
  - Ocular discomfort [Recovered/Resolved]
